FAERS Safety Report 7690699-9 (Version None)
Quarter: 2011Q3

REPORT INFORMATION
  Report Type: 
  Country: None (occurrence: None)
  Receive Date: 20110818
  Receipt Date: 20110815
  Transmission Date: 20111222
  Serious: Yes (Hospitalization)
  Sender: FDA-Public Use
  Company Number: US-BRISTOL-MYERS SQUIBB COMPANY-15969934

PATIENT
  Age: 86 Year
  Sex: Male

DRUGS (1)
  1. COUMADIN [Suspect]
     Dosage: INTERRUPTED IN JUN2011 AND RESTARTED WITH 2MG AND 1 MG

REACTIONS (3)
  - FALL [None]
  - ANAEMIA [None]
  - THROMBOSIS [None]
